FAERS Safety Report 9785493 (Version 1)
Quarter: 2013Q4

REPORT INFORMATION
  Report Type: Spontaneous
  Country: US (occurrence: None)
  Receive Date: 20131226
  Receipt Date: 20131226
  Transmission Date: 20140711
  Serious: No
  Sender: FDA-Public Use
  Company Number: None

PATIENT
  Age: 70 Year
  Sex: Female
  Weight: 86.18 kg

DRUGS (3)
  1. NOSTRILLA NASAL SPRAY OXYMETAZOLINE HCI USP 0.05% INSIGHT PHARMACEUTICALS [Suspect]
     Indication: SINUS CONGESTION
     Dates: start: 20131224
  2. MULTI-VITAMINS [Concomitant]
  3. IRON [Concomitant]

REACTIONS (3)
  - Nasal discomfort [None]
  - Throat irritation [None]
  - Lacrimation increased [None]
